FAERS Safety Report 5767205-9 (Version None)
Quarter: 2008Q2

REPORT INFORMATION
  Report Type: 
  Country: None (occurrence: None)
  Receive Date: 20080611
  Receipt Date: 20080611
  Transmission Date: 20081010
  Serious: Yes (Hospitalization)
  Sender: FDA-Public Use
  Company Number: None

PATIENT
  Sex: Male
  Weight: 96.9 kg

DRUGS (1)
  1. CYTARABINE [Suspect]
     Dosage: 6.7 G
     Dates: end: 20080504

REACTIONS (1)
  - FEBRILE NEUTROPENIA [None]
